FAERS Safety Report 24434318 (Version 1)
Quarter: 2024Q4

REPORT INFORMATION
  Report Type: Report from Study
  Country: PH (occurrence: PH)
  Receive Date: 20241014
  Receipt Date: 20241014
  Transmission Date: 20250115
  Serious: Yes (Death)
  Sender: OTSUKA
  Company Number: PH-OTSUKA-2024_024974

PATIENT
  Age: 66 Year
  Sex: Male

DRUGS (1)
  1. TOLVAPTAN [Suspect]
     Active Substance: TOLVAPTAN
     Indication: Chronic kidney disease
     Dosage: 0.5 DF, QOD (1/2 TABLET EVERY MWF/15 MG 1/2 TABLET EVERY OTHER DAY)
     Route: 048
     Dates: start: 20240904

REACTIONS (5)
  - Depressed level of consciousness [Fatal]
  - Cerebrovascular accident [Fatal]
  - Wrong technique in product usage process [Unknown]
  - Inappropriate schedule of product administration [Unknown]
  - Product use in unapproved indication [Unknown]

NARRATIVE: CASE EVENT DATE: 20240904
